FAERS Safety Report 17185883 (Version 1)
Quarter: 2019Q4

REPORT INFORMATION
  Report Type: Spontaneous
  Country: GB (occurrence: GB)
  Receive Date: 20191220
  Receipt Date: 20191220
  Transmission Date: 20200122
  Serious: Yes (Disabling)
  Sender: FDA-Public Use
  Company Number: GB-VERTEX PHARMACEUTICALS-2019-013072

PATIENT
  Age: 31 Year
  Sex: Female
  Weight: 57.14 kg

DRUGS (24)
  1. MIRENA [Concomitant]
     Active Substance: LEVONORGESTREL
     Dates: start: 20191004
  2. ONDANSETRON HYDROCHLORIDE. [Concomitant]
     Active Substance: ONDANSETRON HYDROCHLORIDE
  3. IBUPROFEN. [Concomitant]
     Active Substance: IBUPROFEN
  4. SODIUM CHLORIDE. [Concomitant]
     Active Substance: SODIUM CHLORIDE
  5. ADCAL-D3 [Concomitant]
     Active Substance: CALCIUM CARBONATE\CHOLECALCIFEROL
  6. PULMOZYME [Concomitant]
     Active Substance: DORNASE ALFA
  7. CREON [Concomitant]
     Active Substance: PANCRELIPASE AMYLASE\PANCRELIPASE LIPASE\PANCRELIPASE PROTEASE
  8. CAYSTON [Concomitant]
     Active Substance: AZTREONAM
  9. CHLORPHENAMINE [Concomitant]
     Active Substance: CHLORPHENIRAMINE MALEATE
  10. AZTREONAM. [Concomitant]
     Active Substance: AZTREONAM
     Route: 042
     Dates: start: 20191002, end: 20191011
  11. SYMKEVI [Suspect]
     Active Substance: IVACAFTOR\TEZACAFTOR
     Indication: CYSTIC FIBROSIS
     Dosage: 100MG/150MG
     Route: 048
     Dates: start: 20190927
  12. MOVICOL [Concomitant]
     Active Substance: POLYETHYLENE GLYCOL 3350\POTASSIUM CHLORIDE\SODIUM BICARBONATE\SODIUM CHLORIDE
  13. CETIRIZINE [Concomitant]
     Active Substance: CETIRIZINE HYDROCHLORIDE
  14. HEPARIN [Concomitant]
     Active Substance: HEPARIN SODIUM
     Dates: start: 20191002, end: 20191011
  15. SLOW SODIUM [Concomitant]
  16. CODEINE [Concomitant]
     Active Substance: CODEINE
  17. COLECALCIFEROL [Concomitant]
     Active Substance: CHOLECALCIFEROL
  18. SPIRIVA [Concomitant]
     Active Substance: TIOTROPIUM BROMIDE MONOHYDRATE
  19. FLUTIFORM [Concomitant]
     Active Substance: FLUTICASONE PROPIONATE\FORMOTEROL FUMARATE
  20. CEFTAZIDIME. [Concomitant]
     Active Substance: CEFTAZIDIME
     Route: 042
     Dates: start: 20191002, end: 20191011
  21. AZITHROMYCIN ANHYDROUS. [Concomitant]
     Active Substance: AZITHROMYCIN ANHYDROUS
     Dosage: 150 MILLIGRAM
  22. SALBUTAMOL [Concomitant]
     Active Substance: ALBUTEROL
  23. KALYDECO [Suspect]
     Active Substance: IVACAFTOR
     Indication: CYSTIC FIBROSIS
     Dosage: UNK
     Route: 048
     Dates: start: 20190927
  24. NASONEX [Concomitant]
     Active Substance: MOMETASONE FUROATE

REACTIONS (5)
  - Insomnia [Not Recovered/Not Resolved]
  - Mood altered [Not Recovered/Not Resolved]
  - Mania [Not Recovered/Not Resolved]
  - Dry mouth [Not Recovered/Not Resolved]
  - Anxiety [Recovering/Resolving]
